FAERS Safety Report 5102963-8 (Version None)
Quarter: 2006Q3

REPORT INFORMATION
  Report Type: 
  Country: None (occurrence: None)
  Receive Date: 20060907
  Receipt Date: 20060817
  Transmission Date: 20061208
  Serious: Yes (Hospitalization)
  Sender: FDA-Public Use
  Company Number: ES200608004064

PATIENT
  Age: 74 Year
  Sex: Female

DRUGS (10)
  1. FORTEO [Suspect]
     Indication: OSTEOPOROSIS
     Dosage: 20 UG, DAILY (1/D), SUBCUTANEOUS
     Route: 058
     Dates: start: 20060601, end: 20060806
  2. FORTEO PEN (FORTEO PEN) [Concomitant]
     Indication: OSTEOPOROSIS
     Dosage: 20 UG, DAILY (1/D), SUBCUTANEOUS
     Route: 058
     Dates: start: 20060601, end: 20060806
  3. FOSAMAX [Concomitant]
  4. OSTEOMERCK (CALCIUM, COLECALCIFEROL) [Concomitant]
  5. ALPRAZOLAM [Concomitant]
  6. DAFLON (DIOSMIN) [Concomitant]
  7. IDAPTAN (TRIMETAZIDINE HYDROCHLORIDE) [Concomitant]
  8. PANTECTA (PANTOPRAZOLE SODIUM) [Concomitant]
  9. ALMAX (ALMAGATE) [Concomitant]
  10. SEROQUEL [Concomitant]

REACTIONS (5)
  - FALL [None]
  - INFLAMMATION [None]
  - JOINT INJURY [None]
  - PHLEBITIS [None]
  - URINARY TRACT INFECTION BACTERIAL [None]
